FAERS Safety Report 9205727 (Version 2)
Quarter: 2013Q2

REPORT INFORMATION
  Report Type: Spontaneous
  Country: US (occurrence: None)
  Receive Date: 20130401
  Receipt Date: 20130409
  Transmission Date: 20140414
  Serious: Yes (Hospitalization, Other)
  Sender: FDA-Public Use
  Company Number: ADR-2013-00541

PATIENT
  Age: 20 Year
  Sex: Male

DRUGS (1)
  1. LIORESAL [Suspect]

REACTIONS (11)
  - Swelling [None]
  - Wound complication [None]
  - Urinary tract infection [None]
  - Device related infection [None]
  - Beta haemolytic streptococcal infection [None]
  - Escherichia infection [None]
  - Wound complication [None]
  - Pseudomeningocele [None]
  - Cerebrospinal fluid leakage [None]
  - Implant site infection [None]
  - Muscle spasticity [None]
